FAERS Safety Report 6207338-6 (Version None)
Quarter: 2009Q2

REPORT INFORMATION
  Report Type: 
  Country: None (occurrence: None)
  Receive Date: 20090528
  Receipt Date: 20090520
  Transmission Date: 20091009
  Serious: Yes (Hospitalization, Other)
  Sender: FDA-Public Use
  Company Number: GB-BAXTER-2009BH008892

PATIENT
  Age: 50 Year
  Sex: Female
  Weight: 56 kg

DRUGS (4)
  1. SODIUM CHLORIDE 0.9% IN PLASTIC CONTAINER [Suspect]
     Indication: DRUG USE FOR UNKNOWN INDICATION
     Route: 042
  2. DOCETAXEL [Suspect]
     Indication: BREAST CANCER
     Route: 042
     Dates: start: 20090409
  3. DEXAMETHASONE 4MG TAB [Concomitant]
     Indication: PREMEDICATION
     Route: 042
     Dates: start: 20090409
  4. ONDANSETRON [Concomitant]
     Indication: PREMEDICATION
     Route: 042
     Dates: start: 20090409

REACTIONS (7)
  - ABDOMINAL PAIN LOWER [None]
  - ANXIETY [None]
  - BACK PAIN [None]
  - CHEST PAIN [None]
  - DYSPNOEA [None]
  - HYPERSENSITIVITY [None]
  - TREMOR [None]
